FAERS Safety Report 4427937-1 (Version None)
Quarter: 2004Q3

REPORT INFORMATION
  Report Type: 
  Country: None (occurrence: None)
  Receive Date: 20040726
  Receipt Date: 20040503
  Transmission Date: 20050211
  Serious: No
  Sender: FDA-Public Use
  Company Number: USA040362590

PATIENT
  Age: 49 Year
  Sex: Female
  Weight: 63 kg

DRUGS (7)
  1. FORTEO [Suspect]
     Indication: OSTEOPOROSIS
     Dosage: 20 UG/1 DAY
     Dates: start: 20040320
  2. EVISTA [Concomitant]
  3. UNIVASC [Concomitant]
  4. CALCIUM [Concomitant]
  5. MULTI-VITAMIN [Concomitant]
  6. ASPIRIN [Concomitant]
  7. VAGIFEM [Concomitant]

REACTIONS (7)
  - FEELING ABNORMAL [None]
  - HYPOTENSION [None]
  - INJECTION SITE ERYTHEMA [None]
  - INJECTION SITE HAEMORRHAGE [None]
  - INJECTION SITE PRURITUS [None]
  - PALPITATIONS [None]
  - TACHYCARDIA [None]
